FAERS Safety Report 4321502-2 (Version None)
Quarter: 2004Q1

REPORT INFORMATION
  Report Type: 
  Country: None (occurrence: None)
  Receive Date: 20040322
  Receipt Date: 20030624
  Transmission Date: 20041129
  Serious: No
  Sender: FDA-Public Use
  Company Number: US-BRISTOL-MYERS SQUIBB COMPANY-12311262

PATIENT
  Age: 56 Year
  Sex: Female

DRUGS (3)
  1. MONISTAT [Suspect]
     Indication: VAGINAL MYCOSIS
     Route: 067
     Dates: start: 20030623, end: 20030623
  2. PREMARIN [Concomitant]
  3. PERIACTIN [Concomitant]
     Indication: INCREASED APPETITE

REACTIONS (2)
  - GENITAL PRURITUS FEMALE [None]
  - VULVAL OEDEMA [None]
